FAERS Safety Report 9512388 (Version 1)
Quarter: 2013Q1

REPORT INFORMATION
  Report Type: Spontaneous
  Country: US (occurrence: None)
  Receive Date: 20130305
  Receipt Date: 20130305
  Transmission Date: 20140127
  Serious: Yes (Other)
  Sender: FDA-Public Use
  Company Number: 163-21880-12091836

PATIENT
  Age: 77 Year
  Sex: Female
  Weight: 79.38 kg

DRUGS (21)
  1. REVLIMID [Suspect]
     Indication: MYELODYSPLASTIC SYNDROME
     Dosage: 10 MG, 1 IN 1 D, PO
     Route: 048
     Dates: start: 20120822
  2. ACETAMINOPHEN (PARACETAMOL) (TABLETS) [Concomitant]
  3. ALBUTEROL (SALBUTAMOL) (UNKNOWN) [Concomitant]
  4. ASA (ACETYLSALICYLIC ACID) (UNKNOWN) [Concomitant]
  5. B COMPLEX (BECOSYM FORTE) (UNKNOWN) [Concomitant]
  6. CALCIUM + D (OS-CAL) (UNIKNOWN) [Concomitant]
  7. FISH OIL (FISH OIL) (UNKNOWN) [Concomitant]
  8. FLAXSEED OIL (LINSEED OIL) (UNKNOWN) [Concomitant]
  9. GARLIC OIL (GARLIC) (UNKNOWN) [Concomitant]
  10. GLUCOSAMINE (GLUCOSAMINE) (UNKNOWN) [Concomitant]
  11. CHONDROITIN (CHONDROITIN) (UNKNONWN) [Concomitant]
  12. MULTIVITAMINS (MULTIVITAMINS) (UNKNOWN) [Concomitant]
  13. RHINOCORT (BUDESONIDE) (UNKNOWN) [Concomitant]
  14. SIMVASTATIN [Concomitant]
  15. SPIRIVA (TIOTROPIUM BROMIDE) (UNKNOWN) [Concomitant]
  16. ST. JOHN^S WORT (HYPERICUM PERFORATUM) (UNKNOWN) [Concomitant]
  17. SYSTANE (RHINARIS) (UNKNOWN) [Concomitant]
  18. ZANTAC (RANITIDINE HYDROCHLORIDE) (UNKNOWN) [Concomitant]
  19. BLOOD (BLOOD AND RELATED PRODUCTS) (UNKNOWN) [Concomitant]
  20. SALINE (SALINE MIXTURE) (UNKNOWN}? [Concomitant]
  21. SYMBICORT (SYMBICORT TURBUHALER ^DRACO^) [Concomitant]

REACTIONS (7)
  - Full blood count abnormal [None]
  - Diarrhoea [None]
  - Poor quality sleep [None]
  - Weight decreased [None]
  - Pruritus generalised [None]
  - Fatigue [None]
  - Decreased appetite [None]
